FAERS Safety Report 16071626 (Version 1)
Quarter: 2019Q1

REPORT INFORMATION
  Report Type: Spontaneous
  Country: US (occurrence: US)
  Receive Date: 20180126
  Receipt Date: 20180126
  Transmission Date: 20190418
  Serious: No
  Sender: FDA-Public Use
  Company Number: None

PATIENT
  Age: 1 Week
  Sex: Female

DRUGS (2)
  1. DECAMYCIN [DEXAMETHASONE SODIUM PHOSPHATE\NEOMYCIN SULFATE] [Suspect]
     Active Substance: DEXAMETHASONE SODIUM PHOSPHATE\NEOMYCIN SULFATE
  2. NO DRUG NAME [Concomitant]

REACTIONS (7)
  - Renal disorder [None]
  - Seizure [None]
  - Exposure to mould [None]
  - Pulmonary congestion [None]
  - Fatigue [None]
  - Hypophagia [None]
  - Vertigo [None]

NARRATIVE: CASE EVENT DATE: 20180126
